FAERS Safety Report 24154632 (Version 3)
Quarter: 2024Q3

REPORT INFORMATION
  Report Type: Spontaneous
  Country: US (occurrence: US)
  Receive Date: 20240731
  Receipt Date: 20240930
  Transmission Date: 20241017
  Serious: No
  Sender: BIOVITRUM
  Company Number: US-BIOVITRUM-2024-US-010365

PATIENT
  Age: 77 Year
  Sex: Female

DRUGS (1)
  1. VONJO [Suspect]
     Active Substance: PACRITINIB
     Indication: Essential thrombocythaemia
     Dosage: TWICE DAILY
     Route: 048
     Dates: start: 20240716

REACTIONS (8)
  - Off label use [Not Recovered/Not Resolved]
  - Nausea [Unknown]
  - Milk allergy [Unknown]
  - Diarrhoea [Unknown]
  - Platelet count decreased [Unknown]
  - Urinary tract infection [Unknown]
  - Petechiae [Unknown]
  - Rash [Unknown]

NARRATIVE: CASE EVENT DATE: 20240716
